FAERS Safety Report 9785616 (Version 1)
Quarter: 2013Q4

REPORT INFORMATION
  Report Type: Spontaneous
  Country: US (occurrence: None)
  Receive Date: 20131226
  Receipt Date: 20131226
  Transmission Date: 20140711
  Serious: No
  Sender: FDA-Public Use
  Company Number: None

PATIENT
  Age: 47 Year
  Sex: Female
  Weight: 63.5 kg

DRUGS (2)
  1. MIRVASO [Suspect]
     Indication: ROSACEA
     Dosage: PEA SIZE ONCE DAILY  TOPICAL
     Route: 061
     Dates: start: 20131202, end: 20131209
  2. MIRVASO [Suspect]
     Indication: SEBORRHOEIC DERMATITIS
     Dosage: PEA SIZE ONCE DAILY  TOPICAL
     Route: 061
     Dates: start: 20131202, end: 20131209

REACTIONS (2)
  - Erythema [None]
  - Condition aggravated [None]
